FAERS Safety Report 8610596-1 (Version None)
Quarter: 2012Q3

REPORT INFORMATION
  Report Type: 
  Country: None (occurrence: None)
  Receive Date: 20120423
  Receipt Date: 20100519
  Transmission Date: 20120928
  Serious: Yes (Other)
  Sender: FDA-Public Use
  Company Number: PHHY2010US32241

PATIENT
  Age: 64 Year
  Sex: Female
  Weight: 68 kg

DRUGS (8)
  1. ZYPREXA [Concomitant]
  2. CALCIUM CARBONATE [Concomitant]
  3. MAGNESIUM (MAGNESIUM) [Concomitant]
  4. DILTIAZEM [Concomitant]
  5. MULTIVITAMINS (ASCORBIC ACID, ERGOCALCIFEROL, FOLIC ACID, NICOTINAMIDE [Concomitant]
  6. ASPIRIN [Concomitant]
  7. FEMARA [Suspect]
  8. ATIVAN [Concomitant]

REACTIONS (1)
  - RIB FRACTURE [None]
